FAERS Safety Report 24795853 (Version 1)
Quarter: 2025Q1

REPORT INFORMATION
  Report Type: Other
  Country: SG (occurrence: SG)
  Receive Date: 20250101
  Receipt Date: 20250101
  Transmission Date: 20250409
  Serious: Yes (Hospitalization, Other)
  Sender: ANI
  Company Number: SG-ANIPHARMA-015217

PATIENT
  Age: 33 Year
  Sex: Female

DRUGS (3)
  1. MORPHINE SULFATE [Suspect]
     Active Substance: MORPHINE SULFATE
     Indication: Anaesthesia
  2. BUPIVACAINE [Concomitant]
     Active Substance: BUPIVACAINE
     Indication: Anaesthesia
  3. FENTANYL [Concomitant]
     Active Substance: FENTANYL
     Indication: Anaesthesia

REACTIONS (4)
  - Hypoxia [Recovered/Resolved]
  - Loss of consciousness [Recovered/Resolved]
  - Medication error [Unknown]
  - Maternal exposure during delivery [Unknown]
